FAERS Safety Report 9558579 (Version 2)
Quarter: 2013Q3

REPORT INFORMATION
  Report Type: Spontaneous
  Country: BR (occurrence: BR)
  Receive Date: 20130926
  Receipt Date: 20130930
  Transmission Date: 20140515
  Serious: Yes (Death, Life-Threatening, Hospitalization, Disabling)
  Sender: FDA-Public Use
  Company Number: BR-B.I. PHARMACEUTICALS,INC./RIDGEFIELD-2013-BR-01063BR

PATIENT
  Age: 83 Year
  Sex: Female
  Weight: 38 kg

DRUGS (3)
  1. PRADAXA [Suspect]
     Indication: SURGERY
     Dosage: 220 MG
     Route: 048
     Dates: start: 20130906, end: 20130917
  2. CEFALEXINA [Concomitant]
     Indication: SURGERY
     Dosage: 2000 MG
     Dates: start: 20130906, end: 20130913
  3. PROSSO [Concomitant]
     Indication: OSTEOPOROSIS
     Dates: start: 20130906, end: 20130919

REACTIONS (5)
  - Brain death [Fatal]
  - Haemorrhagic stroke [Fatal]
  - Nervous system disorder [Fatal]
  - Chronic obstructive pulmonary disease [Fatal]
  - Syncope [Not Recovered/Not Resolved]
